FAERS Safety Report 7783099-4 (Version None)
Quarter: 2011Q3

REPORT INFORMATION
  Report Type: 
  Country: None (occurrence: None)
  Receive Date: 20110927
  Receipt Date: 20110927
  Transmission Date: 20111222
  Serious: Yes (Other)
  Sender: FDA-Public Use
  Company Number: None

PATIENT
  Age: 69 Year
  Sex: Male
  Weight: 83.6 kg

DRUGS (1)
  1. ADALIMUMAB [Suspect]
     Dosage: ML SQ
     Route: 058
     Dates: start: 20110830

REACTIONS (1)
  - INFLUENZA LIKE ILLNESS [None]
